FAERS Safety Report 9463205 (Version 1)
Quarter: 2013Q3

REPORT INFORMATION
  Report Type: Spontaneous
  Country: FR (occurrence: FR)
  Receive Date: 20130818
  Receipt Date: 20130818
  Transmission Date: 20140515
  Serious: Yes (Hospitalization, Other)
  Sender: FDA-Public Use
  Company Number: PHHY2013FR086163

PATIENT
  Age: 53 Year
  Sex: Male

DRUGS (6)
  1. QUETIAPINE [Suspect]
     Dosage: 800 MG, UNK
  2. AMISULPRIDE [Suspect]
     Dosage: 1200 MG, UNK
  3. CLOZAPINE [Suspect]
     Dosage: 400 MG, UNK
  4. HALOPERIDOL [Suspect]
     Dosage: 20 MG, UNK
  5. OLANZAPINE [Suspect]
     Dosage: 65 MG, UNK
  6. RISPERIDONE [Suspect]
     Dosage: 10 MG, UNK

REACTIONS (8)
  - Delusion [Unknown]
  - Hallucination [Unknown]
  - Extrapyramidal disorder [Unknown]
  - Dystonia [Unknown]
  - Akathisia [Unknown]
  - Oculogyric crisis [Unknown]
  - Tremor [Unknown]
  - Tardive dyskinesia [Unknown]
